FAERS Safety Report 4343031-2 (Version None)
Quarter: 2004Q2

REPORT INFORMATION
  Report Type: 
  Country: None (occurrence: None)
  Receive Date: 20040416
  Receipt Date: 20040405
  Transmission Date: 20050107
  Serious: Yes (Hospitalization)
  Sender: FDA-Public Use
  Company Number: US-JNJFOC-20040400807

PATIENT
  Age: 64 Year
  Sex: Female

DRUGS (13)
  1. INFLIXIMAB (INFLIXIMAB, RECOMBINANT) LYOPHILIZED POWDER [Suspect]
     Indication: RHEUMATOID ARTHRITIS
     Dosage: INTRAVENOUS
     Route: 042
     Dates: start: 20001204
  2. HYZAAR [Concomitant]
  3. CARDIZEM [Concomitant]
  4. CARDIZEM [Concomitant]
  5. ZOCOR [Concomitant]
  6. RELAFEN [Concomitant]
  7. PREDNISONE [Concomitant]
  8. METHOTREXATE [Concomitant]
  9. FOLIC ACID [Concomitant]
  10. ASPIRIN [Concomitant]
  11. CALCIUM (CALCIUM) [Concomitant]
  12. NITROGLYCERIN [Concomitant]
  13. MULTIVITAMIN (MULTIVITAMINS) [Concomitant]

REACTIONS (2)
  - FLATULENCE [None]
  - GASTRIC ULCER PERFORATION [None]
